FAERS Safety Report 6304921-4 (Version None)
Quarter: 2009Q3

REPORT INFORMATION
  Report Type: 
  Country: None (occurrence: None)
  Receive Date: 20090811
  Receipt Date: 20090730
  Transmission Date: 20100115
  Serious: Yes (Hospitalization, Other)
  Sender: FDA-Public Use
  Company Number: CA-ROCHE-647160

PATIENT
  Sex: Male

DRUGS (4)
  1. CLONAZEPAM [Suspect]
     Indication: DRUG USE FOR UNKNOWN INDICATION
     Route: 048
  2. CLONAZEPAM [Suspect]
     Dosage: DRUG STOPPED ON AN UNSPECIFIED DATE IN JULY 2009.
     Route: 048
     Dates: start: 20090728
  3. PEG-INTERFERON ALFA 2A (RO 25-8310) [Suspect]
     Indication: HEPATITIS C
     Route: 058
  4. RIBAVIRIN [Suspect]
     Indication: HEPATITIS C
     Dosage: DAILY
     Route: 048

REACTIONS (2)
  - OVERDOSE [None]
  - SELF INJURIOUS BEHAVIOUR [None]
